FAERS Safety Report 9891499 (Version 6)
Quarter: 2015Q2

REPORT INFORMATION
  Report Type: Spontaneous
  Country: PL (occurrence: PL)
  Receive Date: 20140212
  Receipt Date: 20150421
  Transmission Date: 20150821
  Serious: Yes (Hospitalization, Other)
  Sender: FDA-Public Use
  Company Number: PHHY2014PL013219

PATIENT
  Age: 60 Year
  Sex: Male

DRUGS (7)
  1. BROMERGON [Suspect]
     Active Substance: BROMOCRIPTINE MESYLATE
     Indication: ACROMEGALY
     Dosage: 30 MG, QD
     Route: 065
  2. BROMOCRIPTINE [Concomitant]
     Active Substance: BROMOCRIPTINE
     Indication: PRODUCT USED FOR UNKNOWN INDICATION
     Dosage: 30 MG PER DAY
     Route: 065
  3. SANDOSTATIN LAR DEPOT [Suspect]
     Active Substance: OCTREOTIDE ACETATE
     Indication: ACROMEGALY
     Dosage: 30 MG, EVERY 28 DAYS
     Route: 065
     Dates: start: 2004
  4. BROMERGON [Suspect]
     Active Substance: BROMOCRIPTINE MESYLATE
     Dosage: 2 DF, IN EVENING
     Route: 065
  5. L-THYROXIN [Concomitant]
     Active Substance: LEVOTHYROXINE SODIUM
     Indication: PRODUCT USED FOR UNKNOWN INDICATION
     Dosage: 15 UG PER DAY
     Route: 065
  6. OCTREOTIDE [Suspect]
     Active Substance: OCTREOTIDE
     Indication: PITUITARY TUMOUR BENIGN
     Dosage: 30 MG, EVERY 28 DAYS
     Route: 065
  7. EUTHYROX [Suspect]
     Active Substance: LEVOTHYROXINE SODIUM
     Indication: ACROMEGALY
     Dosage: 25 UG, QD
     Route: 065

REACTIONS (17)
  - Benign prostatic hyperplasia [Unknown]
  - Hypertensive angiopathy [Unknown]
  - Blood luteinising hormone decreased [Unknown]
  - Hypertension [Unknown]
  - Goitre [Unknown]
  - Blood cortisol decreased [Unknown]
  - Blood growth hormone abnormal [Unknown]
  - Hypopituitarism [Unknown]
  - Blood testosterone abnormal [Unknown]
  - Blood luteinising hormone abnormal [Unknown]
  - Hyperglycaemia [Unknown]
  - Blood follicle stimulating hormone increased [Unknown]
  - Hyperprolactinaemia [Unknown]
  - Acromegaly [Unknown]
  - Hypogonadism [Unknown]
  - Hypercholesterolaemia [Unknown]
  - Glucose tolerance impaired [Unknown]
